FAERS Safety Report 18959885 (Version 11)
Quarter: 2022Q3

REPORT INFORMATION
  Report Type: Report from Study
  Country: ES (occurrence: ES)
  Receive Date: 20210302
  Receipt Date: 20220809
  Transmission Date: 20221027
  Serious: Yes (Life-Threatening)
  Sender: FDA-Public Use
  Company Number: ES-PFIZER INC-2021207199

PATIENT
  Age: 17 Year
  Sex: Male

DRUGS (14)
  1. INOTUZUMAB OZOGAMICIN [Suspect]
     Active Substance: INOTUZUMAB OZOGAMICIN
     Indication: Acute lymphocytic leukaemia
     Dosage: 1 MG (2 COURSES: 1 COURSE OF COMBINATION TREATMENT AND 1 COURSE OF SINGLE AGENT)
     Route: 042
     Dates: start: 20200701, end: 20200820
  2. METHYLPREDNISOLONE [Concomitant]
     Active Substance: METHYLPREDNISOLONE
     Indication: Acute lymphocytic leukaemia
     Dosage: 50 MG
     Route: 042
     Dates: start: 20200708, end: 20200820
  3. METHOTREXATE [Concomitant]
     Active Substance: METHOTREXATE
     Indication: Acute lymphocytic leukaemia
     Dosage: 15 MG
     Route: 037
     Dates: start: 20200625, end: 20200805
  4. VINCRISTINE [Concomitant]
     Active Substance: VINCRISTINE
     Indication: Acute lymphocytic leukaemia
     Dosage: 2 MG
     Route: 042
     Dates: start: 20200701, end: 20200724
  5. DEXAMETHASONE [Concomitant]
     Active Substance: DEXAMETHASONE
     Indication: Acute lymphocytic leukaemia
     Dosage: 20 MG
     Dates: start: 20200701, end: 20200721
  6. THIOTEPA [Concomitant]
     Active Substance: THIOTEPA
     Indication: Bone marrow conditioning regimen
     Dosage: 5 MG/KG, 1X/DAY
     Route: 042
     Dates: start: 20201020, end: 20201021
  7. FLUDARABINE [Concomitant]
     Active Substance: FLUDARABINE PHOSPHATE
     Indication: Bone marrow conditioning regimen
     Dosage: 50 MG/M2, 1X/DAY
     Route: 042
     Dates: start: 20201022, end: 20201022
  8. FLUDARABINE [Concomitant]
     Active Substance: FLUDARABINE PHOSPHATE
     Dosage: 50 MG/M2, 1X/DAY
     Route: 042
     Dates: start: 20201024, end: 20201024
  9. BUSULFAN [Concomitant]
     Active Substance: BUSULFAN
     Indication: Bone marrow conditioning regimen
     Dosage: 3.2 MG/KG, 1X/DAY
     Route: 042
     Dates: start: 20201022, end: 20201022
  10. BUSULFAN [Concomitant]
     Active Substance: BUSULFAN
     Dosage: 3.2 MG/KG, 1X/DAY
     Route: 042
     Dates: start: 20201024, end: 20201024
  11. CYCLOPHOSPHAMIDE [Concomitant]
     Active Substance: CYCLOPHOSPHAMIDE
     Indication: Prophylaxis against graft versus host disease
     Dosage: 50 MG/KG, 1X/DAY
     Route: 042
     Dates: start: 20201030, end: 20201101
  12. TACROLIMUS [Concomitant]
     Active Substance: TACROLIMUS
     Indication: Prophylaxis against graft versus host disease
     Dosage: VARIABLE DOSE
     Route: 042
     Dates: start: 20201102, end: 20210104
  13. PHENYTOIN [Concomitant]
     Active Substance: PHENYTOIN
     Indication: Prophylaxis
     Dosage: 900 MG, DAILY
     Route: 042
     Dates: start: 20201021, end: 20201021
  14. PHENYTOIN [Concomitant]
     Active Substance: PHENYTOIN
     Dosage: 300 MG, DAILY
     Route: 042
     Dates: start: 20201022, end: 20201026

REACTIONS (1)
  - Venoocclusive disease [Not Recovered/Not Resolved]

NARRATIVE: CASE EVENT DATE: 20201217
